FAERS Safety Report 5245421-2 (Version None)
Quarter: 2007Q1

REPORT INFORMATION
  Report Type: 
  Country: None (occurrence: None)
  Receive Date: 20070223
  Receipt Date: 20070209
  Transmission Date: 20070707
  Serious: Yes (Other)
  Sender: FDA-Public Use
  Company Number: US-SHR-US-2006-031837

PATIENT
  Age: 35 Year
  Sex: Female
  Weight: 58.957 kg

DRUGS (18)
  1. BETASERON [Suspect]
     Indication: RELAPSING-REMITTING MULTIPLE SCLEROSIS
     Dosage: 8 MIU, EVERY 2D
     Route: 058
     Dates: start: 20051017
  2. SOLU-MEDROL [Suspect]
     Indication: RELAPSING-REMITTING MULTIPLE SCLEROSIS
     Dosage: UNK, UNK
     Route: 042
     Dates: start: 20060112, end: 20060114
  3. VESACARE [Concomitant]
     Dosage: 20 MG, BED T.
  4. ADDERALL XR 10 [Concomitant]
     Dosage: 20 MG, 1X/DAY
     Route: 048
  5. ADDERALL 10 [Concomitant]
     Dosage: 10 MG, 2X/DAY
     Route: 048
  6. CELEXA [Concomitant]
     Dosage: 20 MG, BED T.
     Route: 048
  7. BACLOFEN [Concomitant]
     Dosage: 10 MG, 4X/DAY
  8. TIZANIDINE HCL [Concomitant]
     Dosage: 6 MG, BED T.
  9. AMANTADINE HCL [Concomitant]
     Dosage: 100 MG, 2X/DAY
  10. TRAMADOL HCL [Concomitant]
     Dosage: 50 MG, 4X/DAY OR AS NEEDED
  11. ACYCLOVIR [Concomitant]
     Dosage: 200 MG, 3X/DAY
     Route: 048
  12. PROPRANOLOL HYDROCHLORIDE [Concomitant]
     Indication: MIGRAINE
     Dosage: 20 MG, 2X/DAY
  13. ZONEGRAN [Concomitant]
     Indication: MIGRAINE
     Dosage: 2X100MG/1X100MG
  14. DIAZEPAM [Concomitant]
     Dosage: 5 MG, 2X/DAY
     Route: 048
  15. TYLENOL [Concomitant]
     Indication: PREMEDICATION
     Dosage: 1000 MG, EVERY 2D, PRIOR TO SHOT
  16. LEVOTHYROXINE SODIUM [Concomitant]
     Dosage: 50 A?G/DAY, UNK
     Dates: start: 20060810
  17. CYTOMEL [Concomitant]
     Dosage: 5 A?G, 2X/DAY
  18. VITAMIN A [Concomitant]
     Dosage: 50000 IU, 1X/DAY

REACTIONS (10)
  - ARTHRALGIA [None]
  - BONE MARROW DISORDER [None]
  - GENERALISED ERYTHEMA [None]
  - HEADACHE [None]
  - HYPERSENSITIVITY [None]
  - LIVEDO RETICULARIS [None]
  - MULTIPLE SCLEROSIS [None]
  - PAIN [None]
  - PARATHYROID DISORDER [None]
  - SWELLING [None]
